FAERS Safety Report 6423564-5 (Version None)
Quarter: 2009Q4

REPORT INFORMATION
  Report Type: 
  Country: None (occurrence: None)
  Receive Date: 20091028
  Receipt Date: 20091015
  Transmission Date: 20100525
  Serious: Yes (Hospitalization, Other)
  Sender: FDA-Public Use
  Company Number: ES-001032

PATIENT
  Sex: Male

DRUGS (1)
  1. ZOMACTON (ZOMACTON) 4 MG (NOT SPECIFIED) [Suspect]
     Indication: GROWTH HORMONE DEFICIENCY
     Dosage: 0.7 MG SUBCUTANEOUS
     Route: 058
     Dates: start: 20050801, end: 20091008

REACTIONS (1)
  - MUSCULOSKELETAL DISORDER [None]
